FAERS Safety Report 7139120-X (Version None)
Quarter: 2010Q4

REPORT INFORMATION
  Report Type: 
  Country: None (occurrence: None)
  Receive Date: 20101206
  Receipt Date: 20101129
  Transmission Date: 20110411
  Serious: Yes (Hospitalization)
  Sender: FDA-Public Use
  Company Number: Z0005226B

PATIENT
  Sex: Male
  Weight: 84 kg

DRUGS (11)
  1. TOPOTECAN [Suspect]
     Indication: NEOPLASM
     Dosage: 10MG CYCLIC
     Route: 042
     Dates: start: 20100819
  2. PAZOPANIB [Suspect]
     Indication: NEOPLASM
     Dosage: 800MG PER DAY
     Route: 048
     Dates: start: 20100803
  3. CLONIDINE [Concomitant]
     Indication: PAIN
     Dosage: 16MCG TWENTY FOUR TIMES PER DAY
     Route: 008
     Dates: start: 20101125
  4. MORPHINE [Concomitant]
     Indication: PAIN
     Dosage: 264 PER DAY
     Route: 008
     Dates: start: 20101125
  5. MORPHINE [Concomitant]
     Dosage: 4MG AS REQUIRED
     Route: 008
     Dates: start: 20101125
  6. OXYCODONE HCL [Concomitant]
     Indication: PAIN
     Dosage: 10MG AS REQUIRED
     Route: 048
     Dates: start: 20101109
  7. CLONIDINE [Concomitant]
     Dosage: 6MCG AS REQUIRED
     Route: 008
     Dates: start: 20100816
  8. TEMAZEPAM [Concomitant]
     Indication: ANXIETY
     Dosage: 10MG PER DAY
     Route: 048
     Dates: start: 20100809
  9. BUPIVACAINE HCL [Concomitant]
     Indication: PAIN
     Dosage: 4ML AS REQUIRED
     Route: 008
     Dates: start: 20100809
  10. BUPIVACAINE HCL [Concomitant]
     Dosage: 10MLH TWENTY FOUR TIMES PER DAY
     Route: 008
     Dates: start: 20100809
  11. SENNOSIDE [Concomitant]
     Indication: PAIN
     Dosage: 20ML TWICE PER DAY
     Route: 048
     Dates: start: 20100809

REACTIONS (2)
  - ANAEMIA [None]
  - PYREXIA [None]
